FAERS Safety Report 12776751 (Version 2)
Quarter: 2016Q3

REPORT INFORMATION
  Report Type: Spontaneous
  Country: US (occurrence: US)
  Receive Date: 20160923
  Receipt Date: 20160925
  Transmission Date: 20161109
  Serious: Yes (Life-Threatening, Hospitalization, Other)
  Sender: FDA-Public Use
  Company Number: PHHY2016US128079

PATIENT
  Age: 12 Year
  Sex: Male

DRUGS (11)
  1. MELATONIN [Concomitant]
     Active Substance: MELATONIN
     Indication: SLEEP DISORDER
     Dosage: 5 MG, QD (AT BEDTIME AS NEEDED)
     Route: 065
  2. METHYLPHENIDATE HYDROCHLORIDE. [Suspect]
     Active Substance: METHYLPHENIDATE HYDROCHLORIDE
     Indication: PRODUCT USED FOR UNKNOWN INDICATION
     Dosage: 36 MG, QD (ONCE IN MORNING)
     Route: 065
  3. PRAMIPEXOLE. [Suspect]
     Active Substance: PRAMIPEXOLE
     Indication: PRODUCT USED FOR UNKNOWN INDICATION
     Dosage: 0.125 MG, QD (AT BEDTIME)
     Route: 065
  4. RISPERIDONE. [Suspect]
     Active Substance: RISPERIDONE
     Dosage: 0.5 MG, UNK
     Route: 065
  5. VANCOMYCIN [Concomitant]
     Active Substance: VANCOMYCIN
     Indication: EVIDENCE BASED TREATMENT
     Route: 065
  6. VALPROIC ACID. [Suspect]
     Active Substance: VALPROIC ACID
     Indication: PRODUCT USED FOR UNKNOWN INDICATION
     Dosage: 875 MG, QD (375 MG Q AM AND 500 MG AT BEDTIME)
     Route: 065
  7. ACYCLOVIR. [Concomitant]
     Active Substance: ACYCLOVIR
     Indication: EVIDENCE BASED TREATMENT
     Route: 065
  8. RISPERIDONE. [Suspect]
     Active Substance: RISPERIDONE
     Indication: PRODUCT USED FOR UNKNOWN INDICATION
     Dosage: 0.5 MG, BID
     Route: 065
  9. RISPERIDONE. [Suspect]
     Active Substance: RISPERIDONE
     Dosage: 1.5 MG, QD (0.5 MG QAM AND 1MG AT BEDTIME)
     Route: 065
  10. PAROXETINE. [Suspect]
     Active Substance: PAROXETINE
     Indication: PRODUCT USED FOR UNKNOWN INDICATION
     Dosage: 40 MG, QD (EVERY MORNING)
     Route: 065
  11. CEFTRIAXONE. [Concomitant]
     Active Substance: CEFTRIAXONE
     Indication: EVIDENCE BASED TREATMENT
     Route: 065

REACTIONS (16)
  - Neuroleptic malignant syndrome [Recovering/Resolving]
  - Tachypnoea [Recovering/Resolving]
  - Muscle rigidity [Recovering/Resolving]
  - Tachycardia [Recovering/Resolving]
  - Chills [Recovering/Resolving]
  - Constipation [Recovering/Resolving]
  - Dysphagia [Recovering/Resolving]
  - Agitation [Recovering/Resolving]
  - Unresponsive to stimuli [Recovering/Resolving]
  - Salivary hypersecretion [Recovering/Resolving]
  - Dysarthria [Recovering/Resolving]
  - Anxiety [Recovering/Resolving]
  - Hyperhidrosis [Recovering/Resolving]
  - Tremor [Recovering/Resolving]
  - Decerebrate posture [Recovering/Resolving]
  - Opisthotonus [Recovering/Resolving]
